FAERS Safety Report 15433751 (Version 1)
Quarter: 2018Q3

REPORT INFORMATION
  Report Type: Spontaneous
  Country: US (occurrence: US)
  Receive Date: 20180921
  Receipt Date: 20180921
  Transmission Date: 20181010
  Serious: Yes (Death)
  Sender: FDA-Public Use
  Company Number: None

PATIENT
  Age: 61 Year
  Sex: Female
  Weight: 90.1 kg

DRUGS (1)
  1. MAVYRET [Suspect]
     Active Substance: GLECAPREVIR\PIBRENTASVIR
     Indication: CHRONIC HEPATITIS C
     Route: 048
     Dates: start: 20180125, end: 20180326

REACTIONS (6)
  - Shock [None]
  - Continuous haemodiafiltration [None]
  - Encephalopathy [None]
  - Abdominal pain [None]
  - Hepatic failure [None]
  - Acute kidney injury [None]

NARRATIVE: CASE EVENT DATE: 20180326
